FAERS Safety Report 15243291 (Version 1)
Quarter: 2018Q3

REPORT INFORMATION
  Report Type: Spontaneous
  Country: US (occurrence: US)
  Receive Date: 20180712
  Receipt Date: 20180712
  Transmission Date: 20181010
  Serious: Yes (Hospitalization)
  Sender: FDA-Public Use
  Company Number: None

PATIENT
  Age: 53 Year
  Sex: Male

DRUGS (1)
  1. XOLAIR [Suspect]
     Active Substance: OMALIZUMAB
     Indication: ASTHMA
     Dosage: ?          OTHER ROUTE:UNDER THE SKIN?
     Route: 058
     Dates: start: 20180130, end: 201806

REACTIONS (1)
  - Drug ineffective [None]

NARRATIVE: CASE EVENT DATE: 2018
